FAERS Safety Report 16170022 (Version 1)
Quarter: 2019Q2

REPORT INFORMATION
  Report Type: Spontaneous
  Country: MX (occurrence: MX)
  Receive Date: 20190408
  Receipt Date: 20190408
  Transmission Date: 20190711
  Serious: Yes (Death)
  Sender: FDA-Public Use
  Company Number: MX-PFIZER INC-2019149187

PATIENT
  Age: 43 Year
  Sex: Female

DRUGS (3)
  1. FULVESTRANT. [Concomitant]
     Active Substance: FULVESTRANT
  2. IBRANCE [Suspect]
     Active Substance: PALBOCICLIB
     Dosage: 100 MG, UNK
  3. IBRANCE [Suspect]
     Active Substance: PALBOCICLIB
     Indication: BREAST CANCER METASTATIC
     Dosage: 125 MG, UNK

REACTIONS (3)
  - Anaemia [Unknown]
  - Dyspnoea [Unknown]
  - Death [Fatal]
